FAERS Safety Report 5679767-0 (Version None)
Quarter: 2008Q1

REPORT INFORMATION
  Report Type: 
  Country: None (occurrence: None)
  Receive Date: 20080324
  Receipt Date: 20080213
  Transmission Date: 20080703
  Serious: Yes (Hospitalization)
  Sender: FDA-Public Use
  Company Number: LSANDOW02132008

PATIENT
  Sex: Female

DRUGS (1)
  1. MOISTURE THERAPY MOISTURIZING LIP TREATMENT SPF15 [Suspect]

REACTIONS (3)
  - DYSPNOEA [None]
  - LIP SWELLING [None]
  - URTICARIA [None]
